FAERS Safety Report 17825137 (Version 2)
Quarter: 2020Q3

REPORT INFORMATION
  Report Type: Report from Study
  Country: US (occurrence: US)
  Receive Date: 20200526
  Receipt Date: 20200707
  Transmission Date: 20201102
  Serious: No
  Sender: FDA-Public Use
  Company Number: US-SA-2020SA132985

PATIENT

DRUGS (3)
  1. DUPILUMAB [Suspect]
     Active Substance: DUPILUMAB
     Dosage: 600 MG, 1X
     Route: 058
     Dates: start: 20200513, end: 20200513
  2. DUPILUMAB [Suspect]
     Active Substance: DUPILUMAB
     Indication: ASTHMA
     Dosage: UNK UNK, QOW
     Dates: start: 20200318, end: 2020
  3. DUPILUMAB [Suspect]
     Active Substance: DUPILUMAB
     Dosage: MAINTENANCE DOSE
     Dates: start: 2020

REACTIONS (10)
  - Back pain [Recovering/Resolving]
  - Therapeutic response decreased [Unknown]
  - Chest discomfort [Unknown]
  - Abdominal discomfort [Unknown]
  - Cough [Unknown]
  - Upper-airway cough syndrome [Unknown]
  - Renal pain [Recovering/Resolving]
  - Dysphonia [Unknown]
  - Therapeutic response shortened [Unknown]
  - Product use issue [Unknown]

NARRATIVE: CASE EVENT DATE: 2020
